FAERS Safety Report 15183307 (Version 1)
Quarter: 2018Q3

REPORT INFORMATION
  Report Type: Report from Study
  Country: AR (occurrence: AR)
  Receive Date: 20180723
  Receipt Date: 20180723
  Transmission Date: 20181010
  Serious: Yes (Life-Threatening, Hospitalization, Other)
  Sender: FDA-Public Use
  Company Number: AR-MYLANLABS-2018M1052926

PATIENT
  Sex: Female

DRUGS (2)
  1. TRIAMCINOLONE [Suspect]
     Active Substance: TRIAMCINOLONE
     Indication: RADICULOPATHY
     Dosage: 1ML OF TRIAMCINOLONE 60MG
     Route: 050
  2. BUPIVACAINE. [Suspect]
     Active Substance: BUPIVACAINE
     Indication: RADICULOPATHY
     Dosage: 5 ML [STRENGTH NOT STATED]
     Route: 050

REACTIONS (1)
  - Anaphylactic shock [Recovering/Resolving]
